FAERS Safety Report 15715924 (Version 6)
Quarter: 2025Q1

REPORT INFORMATION
  Report Type: Spontaneous
  Country: US (occurrence: US)
  Receive Date: 20181212
  Receipt Date: 20250130
  Transmission Date: 20250408
  Serious: No
  Sender: AMGEN
  Company Number: US-AMGEN-USASP2018177021

PATIENT
  Age: 69 Year
  Sex: Female

DRUGS (3)
  1. ENBREL [Suspect]
     Active Substance: ETANERCEPT
     Indication: Product used for unknown indication
     Route: 065
  2. ENBREL [Suspect]
     Active Substance: ETANERCEPT
     Route: 065
  3. AZATHIOPRINE [Concomitant]
     Active Substance: AZATHIOPRINE
     Dosage: 50 MG, 1X/DAY (TAKE 1 TABLET EVERY DAY)
     Route: 048

REACTIONS (1)
  - Drug hypersensitivity [Not Recovered/Not Resolved]
